FAERS Safety Report 9094972 (Version 2)
Quarter: 2013Q1

REPORT INFORMATION
  Report Type: Spontaneous
  Country: US (occurrence: US)
  Receive Date: 20130201
  Receipt Date: 20130226
  Transmission Date: 20140127
  Serious: Yes (Other)
  Sender: FDA-Public Use
  Company Number: US-ELI_LILLY_AND_COMPANY-US201301008195

PATIENT
  Age: 55 Year
  Sex: Female
  Weight: 48 kg

DRUGS (6)
  1. FORTEO [Suspect]
     Indication: OSTEOPOROSIS
     Dosage: UNK, QD
     Route: 058
     Dates: start: 20120720, end: 20121220
  2. ANASTROZOL [Concomitant]
     Dosage: 1 MG, QD
  3. NEURONTIN [Concomitant]
     Dosage: 600 MG, TID
  4. CALCIUM [Concomitant]
     Dosage: 600 MG, BID
  5. MULTIVITAMIN [Concomitant]
     Dosage: UNK, QD
  6. VITAMIN B COMPLEX [Concomitant]
     Dosage: UNK, QD

REACTIONS (1)
  - Breast cancer metastatic [Not Recovered/Not Resolved]
